FAERS Safety Report 23398098 (Version 1)
Quarter: 2024Q1

REPORT INFORMATION
  Report Type: Spontaneous
  Country: US (occurrence: US)
  Receive Date: 20240112
  Receipt Date: 20240112
  Transmission Date: 20240409
  Serious: Yes (Other)
  Sender: FDA-Public Use
  Company Number: US-PFIZER INC-PV202400004651

PATIENT
  Age: 46 Year
  Sex: Male

DRUGS (2)
  1. XELJANZ [Interacting]
     Active Substance: TOFACITINIB CITRATE
     Indication: Colitis ulcerative
     Dosage: UNK
  2. PREDNISONE [Interacting]
     Active Substance: PREDNISONE
     Indication: Colitis ulcerative
     Dosage: UNK

REACTIONS (2)
  - Drug interaction [Unknown]
  - Immunosuppression [Unknown]
